FAERS Safety Report 21766536 (Version 2)
Quarter: 2023Q1

REPORT INFORMATION
  Report Type: Spontaneous
  Country: DK (occurrence: DK)
  Receive Date: 20221222
  Receipt Date: 20230105
  Transmission Date: 20230417
  Serious: Yes (Other)
  Sender: FDA-Public Use
  Company Number: DK-TEVA-2022-DK-2838357

PATIENT
  Sex: Male

DRUGS (8)
  1. LAMIVUDINE [Suspect]
     Active Substance: LAMIVUDINE
     Indication: HIV infection
     Dosage: 300 MILLIGRAM DAILY;
     Route: 065
     Dates: start: 1996, end: 2004
  2. LAMIVUDINE [Suspect]
     Active Substance: LAMIVUDINE
     Indication: Chronic hepatitis B
  3. TENOFOVIR DISOPROXIL FUMARATE [Suspect]
     Active Substance: TENOFOVIR DISOPROXIL FUMARATE
     Indication: Chronic hepatitis B
     Dosage: 245 MILLIGRAM DAILY;
     Route: 065
     Dates: start: 2004
  4. ENTECAVIR [Suspect]
     Active Substance: ENTECAVIR
     Indication: HIV associated nephropathy
     Dosage: .5 MILLIGRAM DAILY;
     Route: 065
  5. ENTECAVIR [Suspect]
     Active Substance: ENTECAVIR
     Dosage: INTERVAL: EVERY SECOND DAY , 0.5 MG
     Route: 065
     Dates: start: 201810
  6. TENOFOVIR ALAFENAMIDE [Suspect]
     Active Substance: TENOFOVIR ALAFENAMIDE
     Indication: Chronic hepatitis B
     Dosage: 25 MILLIGRAM DAILY;
     Route: 065
     Dates: start: 201909
  7. TENOFOVIR ALAFENAMIDE [Suspect]
     Active Substance: TENOFOVIR ALAFENAMIDE
     Dosage: INTERVAL: EVERY THIRD DAY , 25 MG
     Route: 065
  8. WARFARIN [Concomitant]
     Active Substance: WARFARIN
     Indication: Atrial fibrillation
     Route: 065

REACTIONS (2)
  - Drug resistance [Unknown]
  - Drug ineffective [Unknown]

NARRATIVE: CASE EVENT DATE: 20190401
